FAERS Safety Report 21756790 (Version 1)
Quarter: 2022Q4

REPORT INFORMATION
  Report Type: Spontaneous
  Country: GB (occurrence: None)
  Receive Date: 20221220
  Receipt Date: 20221220
  Transmission Date: 20230113
  Serious: Yes (Other)
  Sender: FDA-Public Use
  Company Number: 2022A410041

PATIENT
  Sex: Male

DRUGS (12)
  1. DAPAGLIFLOZIN [Suspect]
     Active Substance: DAPAGLIFLOZIN
     Route: 048
     Dates: start: 20220516, end: 20221124
  2. APIXABAN [Concomitant]
     Active Substance: APIXABAN
     Dosage: TAKE FOR THREE MONTHS THEN REVIEW
     Route: 065
     Dates: start: 20220322, end: 20221124
  3. ATORVASTATIN [Concomitant]
     Active Substance: ATORVASTATIN
     Indication: Hypercholesterolaemia
     Route: 065
     Dates: start: 20220322, end: 20221124
  4. BETAMETHASONE VALERATE [Concomitant]
     Active Substance: BETAMETHASONE VALERATE
     Dosage: APPLY TO AFFECTED AREA
     Route: 065
     Dates: start: 20221205
  5. BISOPROLOL [Concomitant]
     Active Substance: BISOPROLOL
     Route: 065
     Dates: start: 20220707, end: 20221124
  6. DIETARY SUPPLEMENT [Concomitant]
     Active Substance: DIETARY SUPPLEMENT
     Route: 065
     Dates: start: 20220322
  7. FUROSEMIDE [Concomitant]
     Active Substance: FUROSEMIDE
     Dosage: EACH MORNING TO REMOVE FLUID FROM THE
     Route: 065
     Dates: start: 20220322, end: 20221206
  8. NITROGLYCERIN [Concomitant]
     Active Substance: NITROGLYCERIN
     Dosage: SPRAY ONE OR TWO PUFFS UNDER THE TONGUE AS NEED
     Route: 065
     Dates: start: 20220322
  9. LANSOPRAZOLE [Concomitant]
     Active Substance: LANSOPRAZOLE
     Indication: Diarrhoea
     Dates: start: 20220322, end: 20221124
  10. LOPERAMIDE [Concomitant]
     Active Substance: LOPERAMIDE
     Indication: Diarrhoea
     Dates: start: 20220322, end: 20221124
  11. FENTANYL [Concomitant]
     Active Substance: FENTANYL
     Dosage: THIS REPLACES THE 25M
     Route: 065
     Dates: start: 20220322
  12. SACUBITRIL [Concomitant]
     Active Substance: SACUBITRIL
     Route: 065
     Dates: start: 20220322, end: 20221124

REACTIONS (1)
  - Necrotising fasciitis [Recovering/Resolving]

NARRATIVE: CASE EVENT DATE: 20221201
